FAERS Safety Report 5249136-6 (Version None)
Quarter: 2007Q1

REPORT INFORMATION
  Report Type: 
  Country: None (occurrence: None)
  Receive Date: 20070223
  Receipt Date: 20070208
  Transmission Date: 20070707
  Serious: Yes (Hospitalization)
  Sender: FDA-Public Use
  Company Number: 2007RR-05773

PATIENT
  Age: 34 Year
  Sex: Male

DRUGS (3)
  1. PARACETAMOL (ACETAMINOPHEN/PARACETAMOL) UNKNOWN [Suspect]
  2. PAROXETINE HCL [Suspect]
     Dates: start: 20000901
  3. TRAMADOL HYDROCHLORIDE (TRAMADOL) [Concomitant]

REACTIONS (6)
  - AGGRESSION [None]
  - ALCOHOL POISONING [None]
  - DRUG WITHDRAWAL SYNDROME [None]
  - OVERDOSE [None]
  - SUICIDAL IDEATION [None]
  - SUICIDE ATTEMPT [None]
